FAERS Safety Report 12562748 (Version 1)
Quarter: 2016Q3

REPORT INFORMATION
  Report Type: Report from Study
  Country: GB (occurrence: GB)
  Receive Date: 20160715
  Receipt Date: 20160715
  Transmission Date: 20161109
  Serious: Yes (Hospitalization)
  Sender: FDA-Public Use
  Company Number: GB-009507513-1607GBR004921

PATIENT
  Age: 48 Year
  Sex: Male

DRUGS (15)
  1. CODEINE [Concomitant]
     Active Substance: CODEINE
     Indication: BACK PAIN
     Dosage: 1 DF, 1 AS REQUIRED
     Route: 048
     Dates: start: 2015
  2. VELCADE [Suspect]
     Active Substance: BORTEZOMIB
     Dosage: 1 MG/M2 2 IN 1 WK, ON DAYS 1,4,8 AND 11 CYCLE 1, BIW
     Route: 058
     Dates: start: 20160516
  3. AMITRIPTYLINE HYDROCHLORIDE. [Concomitant]
     Active Substance: AMITRIPTYLINE HYDROCHLORIDE
     Dosage: 1 DF, 1 IN 1 D
     Route: 048
     Dates: start: 20151221
  4. VELCADE [Suspect]
     Active Substance: BORTEZOMIB
     Dosage: 1 MG/M2 2 IN 1 WK, ON DAYS 1,4,8 AND 11 CYCLE 1 BIW
     Route: 058
     Dates: start: 20160418, end: 20160509
  5. ACETAMINOPHEN. [Concomitant]
     Active Substance: ACETAMINOPHEN
     Indication: BACK PAIN
     Dosage: 4 G, 4 IN 1 D
     Route: 048
  6. ALLOPURINOL. [Concomitant]
     Active Substance: ALLOPURINOL
     Indication: PROPHYLAXIS
     Dosage: 300 MG, 1 IN 1 M
     Route: 048
     Dates: start: 20151214
  7. DEXAMETHASONE. [Suspect]
     Active Substance: DEXAMETHASONE
     Indication: PLASMA CELL MYELOMA
     Dosage: 20 MG, ON DAYS 1, 2,4,5,8,9,11 AND 12
     Route: 048
     Dates: start: 20151214
  8. ZOPICLONE [Concomitant]
     Active Substance: ZOPICLONE
     Indication: INSOMNIA
     Dosage: AT NIGHT, 1 IN 1 D
     Route: 048
  9. OMEPRAZOLE. [Concomitant]
     Active Substance: OMEPRAZOLE
     Indication: GASTROINTESTINAL DISORDER THERAPY
     Dosage: 20 MG, 1 IN 1 D
     Route: 048
     Dates: start: 20151214
  10. LAXIDO [Concomitant]
     Active Substance: POLYETHYLENE GLYCOL 3350\POTASSIUM CHLORIDE\SODIUM BICARBONATE\SODIUM CHLORIDE
     Indication: CONSTIPATION
     Dosage: 1 AS REQUIRED
     Route: 048
     Dates: start: 2015
  11. DEXAMETHASONE. [Suspect]
     Active Substance: DEXAMETHASONE
     Dosage: 20 MG, UNKNOWN
     Route: 048
     Dates: start: 20160516
  12. TRAMADOL HYDROCHLORIDE. [Concomitant]
     Active Substance: TRAMADOL HYDROCHLORIDE
     Indication: BACK PAIN
     Dosage: 150 MG, 3 IN 1 D
     Route: 048
  13. DEXAMETHASONE. [Suspect]
     Active Substance: DEXAMETHASONE
     Dosage: 20 MG, UNKNOWN
     Route: 048
     Dates: start: 20160418, end: 20160509
  14. VELCADE [Suspect]
     Active Substance: BORTEZOMIB
     Indication: PLASMA CELL MYELOMA
     Dosage: 1.3 MG/M2 2 IN 1 WK, ON DAYS 1,4,8 AND 11 CYCLE 1, BIW
     Route: 058
     Dates: start: 20151214
  15. ACYCLOVIR. [Concomitant]
     Active Substance: ACYCLOVIR
     Indication: ANTIVIRAL PROPHYLAXIS
     Dosage: 800 MG, 2 IN 1 D
     Route: 048
     Dates: start: 20151214

REACTIONS (1)
  - Pyrexia [Recovered/Resolved]

NARRATIVE: CASE EVENT DATE: 20160504
